FAERS Safety Report 7931305-5 (Version None)
Quarter: 2011Q4

REPORT INFORMATION
  Report Type: 
  Country: None (occurrence: None)
  Receive Date: 20111121
  Receipt Date: 20111111
  Transmission Date: 20120403
  Serious: Yes (Other)
  Sender: FDA-Public Use
  Company Number: US-BAYER-201012551NA

PATIENT
  Age: 26 Year
  Sex: Female
  Weight: 77.551 kg

DRUGS (13)
  1. IBUPROFEN [Concomitant]
     Dosage: 800 MG, UNK
     Route: 048
     Dates: start: 20061213
  2. MAXZIDE [Concomitant]
     Route: 048
  3. YAZ [Suspect]
     Indication: PRODUCT USED FOR UNKNOWN INDICATION
     Dosage: 1 DF (DAILY DOSE), , ORAL
     Route: 048
     Dates: start: 20020901, end: 20050101
  4. BACTRIM [Concomitant]
     Route: 048
  5. PROMETHAZINE [Concomitant]
     Route: 048
  6. LEXAPRO [Concomitant]
     Route: 048
  7. PRILOSEC [Concomitant]
     Route: 048
  8. CIPROFLOXACIN [Concomitant]
     Dosage: 250 MG, UNK
     Dates: start: 20061228
  9. ORTHO-CEPT [Concomitant]
     Dosage: UNK
     Dates: start: 20061001, end: 20070101
  10. AZITHROMYCIN [Concomitant]
     Dosage: 250 MG, UNK
     Dates: start: 20061017
  11. HYDROCHLOROTHIAZIDE [Concomitant]
     Indication: HYPERTENSION
     Dosage: UNK
     Route: 048
     Dates: start: 20050505
  12. EXCEDRIN (MIGRAINE) [Concomitant]
     Route: 048
  13. MEDROXYPROGESTERONE [Concomitant]
     Dosage: UNK
     Dates: start: 20060829

REACTIONS (5)
  - BILIARY COLIC [None]
  - GALLBLADDER INJURY [None]
  - CHOLECYSTITIS CHRONIC [None]
  - CHOLELITHIASIS [None]
  - EMOTIONAL DISTRESS [None]
